FAERS Safety Report 7049294-7 (Version None)
Quarter: 2010Q4

REPORT INFORMATION
  Report Type: 
  Country: None (occurrence: None)
  Receive Date: 20101018
  Receipt Date: 20101007
  Transmission Date: 20110411
  Serious: Yes (Other)
  Sender: FDA-Public Use
  Company Number: JP-ROCHE-726888

PATIENT
  Age: 54 Year
  Sex: Female

DRUGS (4)
  1. XELODA [Suspect]
     Indication: BREAST CANCER
     Dosage: DRUG: XELODA 300; 3 WEEKS ADMINISTRATION FOLLOWED BY 1 WEEK REST
     Route: 048
     Dates: start: 20090801
  2. TYKERB [Concomitant]
     Dosage: DOSAGE WAS UNCERTAIN
     Route: 048
     Dates: start: 20090801
  3. NEORAL [Concomitant]
     Dosage: DOSE FORM: PERORAL AGENT, DOSAGE WAS UNCERTAIN.
     Route: 048
  4. BONALON [Concomitant]
     Dosage: DOSAGE WAS UNCERTAIN
     Route: 048
     Dates: start: 20090701

REACTIONS (3)
  - CHOLELITHIASIS [None]
  - JAUNDICE [None]
  - LIVER DISORDER [None]
